FAERS Safety Report 8507830-5 (Version None)
Quarter: 2012Q3

REPORT INFORMATION
  Report Type: 
  Country: None (occurrence: None)
  Receive Date: 20120713
  Receipt Date: 20120627
  Transmission Date: 20120928
  Serious: No
  Sender: FDA-Public Use
  Company Number: CA-JNJFOC-20120700250

PATIENT
  Sex: Female
  Weight: 58 kg

DRUGS (6)
  1. REMICADE [Suspect]
     Indication: CROHN'S DISEASE
     Dosage: INDUCTION PHASE
     Route: 042
     Dates: start: 20120410
  2. ACETAMINOPHEN [Concomitant]
     Route: 065
  3. TRAMADOL HCL [Concomitant]
     Route: 065
  4. REMICADE [Suspect]
     Indication: RHEUMATOID ARTHRITIS
     Dosage: INDUCTION PHASE
     Route: 042
     Dates: start: 20120410
  5. PENTASA [Concomitant]
     Route: 065
  6. MORPHINE [Concomitant]
     Route: 065

REACTIONS (5)
  - RESPIRATORY TRACT CONGESTION [None]
  - NASOPHARYNGITIS [None]
  - MALAISE [None]
  - HEADACHE [None]
  - COUGH [None]
